FAERS Safety Report 23516909 (Version 1)
Quarter: 2024Q1

REPORT INFORMATION
  Report Type: Spontaneous
  Country: ID (occurrence: ID)
  Receive Date: 20240213
  Receipt Date: 20240213
  Transmission Date: 20240410
  Serious: Yes (Other)
  Sender: FDA-Public Use
  Company Number: None

PATIENT
  Age: 59 Year
  Sex: Male

DRUGS (15)
  1. LINEZOLID [Suspect]
     Active Substance: LINEZOLID
     Indication: Pulmonary tuberculosis
     Dosage: 600 MILLIGRAM, QD
     Route: 065
     Dates: start: 201807, end: 2018
  2. LINEZOLID [Suspect]
     Active Substance: LINEZOLID
     Dosage: 300 MILLIGRAM, QD
     Route: 065
     Dates: start: 2018, end: 2019
  3. LINEZOLID [Suspect]
     Active Substance: LINEZOLID
     Dosage: 300 MILLIGRAM, QD
     Route: 065
     Dates: start: 2019, end: 201908
  4. BEDAQUILINE [Concomitant]
     Active Substance: BEDAQUILINE
     Indication: Pulmonary tuberculosis
     Dosage: 200 MILLIGRAM, QD
     Route: 065
     Dates: start: 2018, end: 2018
  5. BEDAQUILINE [Concomitant]
     Active Substance: BEDAQUILINE
     Dosage: 400 MILLIGRAM, QD
     Route: 065
     Dates: start: 201807, end: 2018
  6. CYCLOSERINE [Concomitant]
     Active Substance: CYCLOSERINE
     Indication: Pulmonary tuberculosis
     Dosage: 875 MILLIGRAM, QD
     Route: 065
     Dates: start: 201807, end: 2018
  7. CYCLOSERINE [Concomitant]
     Active Substance: CYCLOSERINE
     Dosage: 500 MILLIGRAM, QD
     Route: 065
     Dates: start: 2018
  8. ISONIAZID [Concomitant]
     Active Substance: ISONIAZID
     Indication: Pulmonary tuberculosis
     Dosage: 600 MILLIGRAM, QD
     Route: 065
     Dates: start: 201807
  9. INSULIN NOS [Concomitant]
     Active Substance: INSULIN NOS
     Indication: Type 2 diabetes mellitus
     Dosage: UNK
     Route: 065
     Dates: start: 2018
  10. LEVOFLOXACIN [Concomitant]
     Active Substance: LEVOFLOXACIN
     Indication: Pulmonary tuberculosis
     Dosage: 875 MILLIGRAM, QD
     Route: 065
     Dates: start: 201807
  11. PYRIDOXINE [Concomitant]
     Active Substance: PYRIDOXINE
     Indication: Pulmonary tuberculosis
     Dosage: 200 MILLIGRAM, QD
     Route: 065
     Dates: start: 201807
  12. RISPERIDONE [Concomitant]
     Active Substance: RISPERIDONE
     Indication: Depression
     Dosage: 1 MILLIGRAM, BID
     Route: 065
     Dates: start: 2018
  13. RISPERIDONE [Concomitant]
     Active Substance: RISPERIDONE
     Indication: Hallucination, visual
  14. TENOFOVIR DISOPROXIL FUMARATE [Concomitant]
     Active Substance: TENOFOVIR DISOPROXIL FUMARATE
     Indication: Hepatic cirrhosis
     Dosage: 300 MILLIGRAM, QD
     Route: 065
     Dates: start: 201801
  15. TENOFOVIR DISOPROXIL FUMARATE [Concomitant]
     Active Substance: TENOFOVIR DISOPROXIL FUMARATE
     Indication: Chronic hepatitis B

REACTIONS (5)
  - Optic neuritis [Unknown]
  - Thrombocytopenia [Recovered/Resolved]
  - Myelosuppression [Recovered/Resolved]
  - Pancytopenia [Recovered/Resolved]
  - Myelosuppression [Recovered/Resolved]

NARRATIVE: CASE EVENT DATE: 20180101
